FAERS Safety Report 8433566-5 (Version None)
Quarter: 2012Q2

REPORT INFORMATION
  Report Type: 
  Country: None (occurrence: None)
  Receive Date: 20120613
  Receipt Date: 20120607
  Transmission Date: 20120825
  Serious: Yes (Other)
  Sender: FDA-Public Use
  Company Number: CN-PFIZER INC-2012138842

PATIENT
  Age: 56 Year
  Sex: Female

DRUGS (18)
  1. FLUOROURACIL [Concomitant]
     Dosage: UNK
     Dates: start: 20090521, end: 20090521
  2. EPIRUBICIN HYDROCHLORIDE [Suspect]
     Dosage: 110 MG, 1X/DAY
     Route: 041
     Dates: start: 20090521, end: 20090521
  3. EPIRUBICIN HYDROCHLORIDE [Suspect]
     Dosage: 110 MG, 1X/DAY
     Route: 041
     Dates: start: 20090724, end: 20090724
  4. CYCLOPHOSPHAMIDE [Concomitant]
     Dosage: UNK
     Dates: start: 20090814, end: 20090814
  5. EPIRUBICIN HYDROCHLORIDE [Suspect]
     Dosage: 110 MG, 1X/DAY
     Route: 041
     Dates: start: 20090611, end: 20090611
  6. CYCLOPHOSPHAMIDE [Concomitant]
     Dosage: UNK
     Dates: start: 20090521, end: 20090521
  7. CYCLOPHOSPHAMIDE [Concomitant]
     Dosage: UNK
     Dates: start: 20090703, end: 20090703
  8. CYCLOPHOSPHAMIDE [Concomitant]
     Dosage: UNK
     Dates: start: 20090611, end: 20090611
  9. FLUOROURACIL [Concomitant]
     Dosage: UNK
     Dates: start: 20090611, end: 20090611
  10. EPIRUBICIN HYDROCHLORIDE [Suspect]
     Indication: BREAST CANCER FEMALE
     Dosage: 110 MG, 1X/DAY
     Route: 041
     Dates: start: 20090430, end: 20090430
  11. EPIRUBICIN HYDROCHLORIDE [Suspect]
     Dosage: 110 MG, 1X/DAY
     Route: 041
     Dates: start: 20090814, end: 20090814
  12. CYCLOPHOSPHAMIDE [Concomitant]
     Indication: BREAST CANCER FEMALE
     Dosage: 0.8
     Dates: start: 20090430, end: 20090430
  13. CYCLOPHOSPHAMIDE [Concomitant]
     Dosage: UNK
     Dates: start: 20090724, end: 20090724
  14. FLUOROURACIL [Concomitant]
     Dosage: UNK
     Dates: start: 20090814, end: 20090814
  15. EPIRUBICIN HYDROCHLORIDE [Suspect]
     Dosage: 110 MG, 1X/DAY
     Route: 041
     Dates: start: 20090703, end: 20090703
  16. FLUOROURACIL [Concomitant]
     Indication: BREAST CANCER FEMALE
     Dosage: UNK
     Dates: start: 20090430, end: 20090430
  17. FLUOROURACIL [Concomitant]
     Dosage: UNK
     Dates: start: 20090703, end: 20090703
  18. FLUOROURACIL [Concomitant]
     Dosage: UNK
     Dates: start: 20090724, end: 20090724

REACTIONS (2)
  - SUPRAVENTRICULAR EXTRASYSTOLES [None]
  - ELECTROCARDIOGRAM ST-T CHANGE [None]
